FAERS Safety Report 23208044 (Version 2)
Quarter: 2024Q1

REPORT INFORMATION
  Report Type: Report from Study
  Country: KR (occurrence: KR)
  Receive Date: 20231121
  Receipt Date: 20240307
  Transmission Date: 20240409
  Serious: Yes (Hospitalization, Other)
  Sender: FDA-Public Use
  Company Number: KR-BRISTOL-MYERS SQUIBB COMPANY-2023-162871

PATIENT
  Age: 53 Year
  Sex: Female

DRUGS (25)
  1. POMALYST [Suspect]
     Active Substance: POMALIDOMIDE
     Indication: Plasma cell myeloma
     Dates: start: 20230621, end: 20230726
  2. POMALYST [Suspect]
     Active Substance: POMALIDOMIDE
     Dates: start: 20230803, end: 20230823
  3. POMALYST [Suspect]
     Active Substance: POMALIDOMIDE
     Dates: start: 20230914, end: 20231113
  4. DEXAMETHASONE [Suspect]
     Active Substance: DEXAMETHASONE
     Indication: Product used for unknown indication
     Dosage: 160MG/CYCLE
  5. DEXAMETHASONE [Suspect]
     Active Substance: DEXAMETHASONE
     Dosage: 160MG/CYCLE
  6. DEXAMETHASONE [Suspect]
     Active Substance: DEXAMETHASONE
     Dosage: 160MG/CYCLE
  7. BARACLE [Concomitant]
     Indication: Hepatitis B virus test
     Route: 048
     Dates: start: 20230713, end: 20230724
  8. CEFACLOR [Concomitant]
     Active Substance: CEFACLOR
     Indication: Cellulitis
     Route: 048
     Dates: start: 20230920, end: 20230924
  9. CEFACLOR [Concomitant]
     Active Substance: CEFACLOR
     Indication: Infective myositis
     Route: 048
     Dates: start: 20230920, end: 20230921
  10. CEFACLOR [Concomitant]
     Active Substance: CEFACLOR
     Indication: Pyrexia
     Route: 048
     Dates: start: 20230810, end: 20230816
  11. CEFACLOR [Concomitant]
     Active Substance: CEFACLOR
     Indication: Prophylaxis
  12. CEFAZOLIN SODIUM [Concomitant]
     Active Substance: CEFAZOLIN SODIUM
     Indication: Cellulitis
     Route: 042
     Dates: start: 20230804, end: 20230809
  13. CEFAZOLIN SODIUM [Concomitant]
     Active Substance: CEFAZOLIN SODIUM
     Indication: Infective myositis
  14. CIPLUS [CIPROFLOXACIN LACTATE] [Concomitant]
     Indication: Cellulitis
     Route: 042
     Dates: start: 20230804, end: 20230809
  15. CIPLUS [CIPROFLOXACIN LACTATE] [Concomitant]
     Indication: Infective myositis
  16. CYCIN [CIPROFLOXACIN LACTATE] [Concomitant]
     Indication: Cellulitis
     Route: 048
     Dates: start: 20230920, end: 20230924
  17. CYCIN [CIPROFLOXACIN LACTATE] [Concomitant]
     Indication: Infective myositis
     Route: 048
     Dates: start: 20230920, end: 20230921
  18. CYCIN [CIPROFLOXACIN LACTATE] [Concomitant]
     Indication: Pyrexia
     Route: 048
     Dates: start: 20230810, end: 20230816
  19. CYCIN [CIPROFLOXACIN LACTATE] [Concomitant]
     Indication: Prophylaxis
  20. FEBUXOSTAT [Concomitant]
     Active Substance: FEBUXOSTAT
     Indication: Prophylaxis
     Route: 048
     Dates: start: 20220315
  21. ELIQUIS [Concomitant]
     Active Substance: APIXABAN
     Indication: Deep vein thrombosis
     Route: 048
     Dates: start: 20210624
  22. ZALTOPROFEN [Concomitant]
     Active Substance: ZALTOPROFEN
     Indication: Arthralgia
     Route: 048
     Dates: start: 20230920, end: 20230921
  23. ZALTOPROFEN [Concomitant]
     Active Substance: ZALTOPROFEN
     Indication: Prophylaxis
     Route: 048
     Dates: start: 20230920, end: 20230924
  24. ARTEMISIA ARGYI LEAF [Concomitant]
     Active Substance: ARTEMISIA ARGYI LEAF
     Indication: Arthralgia
     Route: 048
     Dates: start: 20230920, end: 20230921
  25. ARTEMISIA ARGYI LEAF [Concomitant]
     Active Substance: ARTEMISIA ARGYI LEAF
     Indication: Prophylaxis
     Route: 048
     Dates: start: 20230920, end: 20230924

REACTIONS (1)
  - Enterocolitis [Recovered/Resolved]

NARRATIVE: CASE EVENT DATE: 20230921
